FAERS Safety Report 21337841 (Version 2)
Quarter: 2022Q4

REPORT INFORMATION
  Report Type: Spontaneous
  Country: US (occurrence: US)
  Receive Date: 20220915
  Receipt Date: 20221214
  Transmission Date: 20230113
  Serious: Yes (Other)
  Sender: FDA-Public Use
  Company Number: US-JNJFOC-20220928691

PATIENT
  Age: 7 Decade

DRUGS (33)
  1. DARZALEX [Suspect]
     Active Substance: DARATUMUMAB
     Indication: Plasma cell myeloma
     Route: 065
     Dates: start: 20210121
  2. DARZALEX [Suspect]
     Active Substance: DARATUMUMAB
     Route: 065
     Dates: start: 20210909, end: 20211007
  3. DARZALEX [Suspect]
     Active Substance: DARATUMUMAB
     Route: 065
     Dates: start: 20211008, end: 20220303
  4. DARZALEX [Suspect]
     Active Substance: DARATUMUMAB
     Route: 065
     Dates: start: 20220228
  5. KYPROLIS [Suspect]
     Active Substance: CARFILZOMIB
     Indication: Plasma cell myeloma
     Route: 065
     Dates: start: 20210121, end: 20211007
  6. KYPROLIS [Suspect]
     Active Substance: CARFILZOMIB
     Route: 065
     Dates: start: 20210513, end: 20210708
  7. KYPROLIS [Suspect]
     Active Substance: CARFILZOMIB
     Route: 065
     Dates: start: 20210909, end: 20211007
  8. KYPROLIS [Suspect]
     Active Substance: CARFILZOMIB
     Route: 065
     Dates: start: 20210228
  9. POMALIDOMIDE [Suspect]
     Active Substance: POMALIDOMIDE
     Indication: Plasma cell myeloma
     Route: 065
     Dates: start: 20210121
  10. POMALIDOMIDE [Suspect]
     Active Substance: POMALIDOMIDE
     Route: 065
     Dates: start: 20210318, end: 20210513
  11. POMALIDOMIDE [Suspect]
     Active Substance: POMALIDOMIDE
     Route: 065
     Dates: start: 20210513, end: 20210708
  12. POMALIDOMIDE [Suspect]
     Active Substance: POMALIDOMIDE
     Route: 065
     Dates: start: 20210708, end: 20210909
  13. POMALIDOMIDE [Suspect]
     Active Substance: POMALIDOMIDE
     Route: 065
     Dates: start: 20210909, end: 20211007
  14. POMALIDOMIDE [Suspect]
     Active Substance: POMALIDOMIDE
     Route: 065
     Dates: start: 20211008, end: 20220303
  15. POMALIDOMIDE [Suspect]
     Active Substance: POMALIDOMIDE
     Route: 065
     Dates: start: 20220228
  16. DEXAMETHASONE [Suspect]
     Active Substance: DEXAMETHASONE
     Indication: Plasma cell myeloma
     Route: 065
     Dates: start: 20210121
  17. DEXAMETHASONE [Suspect]
     Active Substance: DEXAMETHASONE
     Route: 065
     Dates: start: 20210513, end: 20210708
  18. DEXAMETHASONE [Suspect]
     Active Substance: DEXAMETHASONE
     Route: 065
     Dates: start: 20210909, end: 20211007
  19. DEXAMETHASONE [Suspect]
     Active Substance: DEXAMETHASONE
     Route: 065
     Dates: start: 20211008, end: 20220303
  20. DEXAMETHASONE [Suspect]
     Active Substance: DEXAMETHASONE
     Route: 065
  21. TYLENOL [Concomitant]
     Active Substance: ACETAMINOPHEN
     Dosage: TAKE 650 MG BY MOUTH EVERY 4 HOURS AS NEEDED FOR PAIN (AS NEEDED
     Route: 065
  22. ZOVIRAX [Concomitant]
     Active Substance: ACYCLOVIR
     Route: 048
     Dates: start: 20220222
  23. UROXATRAL [Concomitant]
     Active Substance: ALFUZOSIN HYDROCHLORIDE
     Route: 048
     Dates: start: 20211227
  24. ASPIRIN [Concomitant]
     Active Substance: ASPIRIN
     Route: 048
  25. VITAMIN D3 [Concomitant]
     Active Substance: CHOLECALCIFEROL
     Dosage: 2000 UNITS
     Route: 048
     Dates: start: 20170522
  26. BARACLUDE [Concomitant]
     Active Substance: ENTECAVIR
     Route: 048
     Dates: start: 20220106
  27. PROSCAR [Concomitant]
     Active Substance: FINASTERIDE
     Route: 048
     Dates: start: 20211221
  28. NEURONTIN [Concomitant]
     Active Substance: GABAPENTIN
     Route: 048
     Dates: start: 20220124
  29. PREPARATION H [PHENYLMERCURIC NITRATE;SHARK-LIVER OIL;YEAST] [Concomitant]
     Dosage: 0.25-14-74.9 % AND 	INSERT IN RECTUM 4 TIMES DAILY AS NEEDED
     Route: 054
     Dates: start: 20220527
  30. SYNTHROID [Concomitant]
     Active Substance: LEVOTHYROXINE SODIUM
     Route: 065
     Dates: start: 20211221
  31. OXYCODONE [Concomitant]
     Active Substance: OXYCODONE
     Route: 048
     Dates: start: 20220511
  32. ALTACE [Concomitant]
     Active Substance: RAMIPRIL
     Route: 048
     Dates: start: 20211213
  33. CRESTOR [Concomitant]
     Active Substance: ROSUVASTATIN CALCIUM
     Route: 048
     Dates: start: 20220504

REACTIONS (4)
  - Jaw fracture [Recovered/Resolved]
  - Thrombocytopenia [Unknown]
  - Neutropenia [Unknown]
  - Plasma cell myeloma [Unknown]

NARRATIVE: CASE EVENT DATE: 20210101
